FAERS Safety Report 15238633 (Version 13)
Quarter: 2019Q2

REPORT INFORMATION
  Report Type: Report from Study
  Country: CO (occurrence: CO)
  Receive Date: 20180803
  Receipt Date: 20190625
  Transmission Date: 20190711
  Serious: Yes (Hospitalization, Other)
  Sender: FDA-Public Use
  Company Number: CO-SA-2018SA141665

PATIENT
  Age: 45 Year
  Sex: Female

DRUGS (3)
  1. ALEMTUZUMAB [Suspect]
     Active Substance: ALEMTUZUMAB
     Indication: MULTIPLE SCLEROSIS
     Dosage: 12 MG, QD
     Route: 041
     Dates: start: 20180516, end: 20180518
  2. EUTIROX [Concomitant]
     Active Substance: LEVOTHYROXINE SODIUM
     Indication: HYPOTHYROIDISM
     Dosage: 100 UNK, QD
     Route: 048
  3. WINADEINE [Concomitant]
     Dosage: UNK

REACTIONS (26)
  - Nitrite urine present [Not Recovered/Not Resolved]
  - Pelvic pain [Unknown]
  - Bacteriuria [Not Recovered/Not Resolved]
  - Blood creatinine decreased [Recovered/Resolved]
  - Asthenia [Recovered/Resolved]
  - Cough [Unknown]
  - Oropharyngeal pain [Unknown]
  - Crystal urine present [Recovered/Resolved]
  - Blood thyroid stimulating hormone decreased [Not Recovered/Not Resolved]
  - Lymphocyte count decreased [Recovered/Resolved]
  - Vision blurred [Recovered/Resolved]
  - Dysuria [Unknown]
  - Hyperhidrosis [Recovered/Resolved]
  - White blood cell count decreased [Recovered/Resolved]
  - Dyspnoea [Unknown]
  - Vertigo [Recovered/Resolved]
  - Headache [Recovered/Resolved]
  - Nausea [Recovered/Resolved]
  - Altered state of consciousness [Recovered/Resolved]
  - Bronchitis [Unknown]
  - Urinary tract infection bacterial [Not Recovered/Not Resolved]
  - Leukocyturia [Not Recovered/Not Resolved]
  - Posture abnormal [Recovered/Resolved]
  - Laryngitis [Unknown]
  - Feeling abnormal [Recovered/Resolved]
  - Red blood cells urine positive [Recovered/Resolved]

NARRATIVE: CASE EVENT DATE: 201805
